FAERS Safety Report 13592021 (Version 2)
Quarter: 2017Q3

REPORT INFORMATION
  Report Type: Report from Study
  Country: JP (occurrence: JP)
  Receive Date: 20170529
  Receipt Date: 20170803
  Transmission Date: 20171127
  Serious: Yes (Hospitalization, Other)
  Sender: FDA-Public Use
  Company Number: JP-BRISTOL-MYERS SQUIBB COMPANY-BMS-2016-112596

PATIENT
  Age: 60 Year
  Sex: Male

DRUGS (2)
  1. YERVOY [Suspect]
     Active Substance: IPILIMUMAB
     Indication: MALIGNANT MELANOMA
     Dosage: 192 MG, QD
     Route: 041
     Dates: start: 20160819, end: 20170118
  2. NIVOLUMAB [Suspect]
     Active Substance: NIVOLUMAB
     Indication: MALIGNANT MELANOMA
     Dosage: 2 MG/KG, QD
     Route: 041
     Dates: start: 20160222, end: 20160527

REACTIONS (11)
  - Seasonal allergy [Recovered/Resolved]
  - Pyrexia [Recovered/Resolved]
  - Malaise [Recovered/Resolved]
  - Diarrhoea [Recovered/Resolved]
  - Hepatic function abnormal [Recovered/Resolved]
  - Epistaxis [Recovering/Resolving]
  - Enterocolitis [Recovering/Resolving]
  - Myalgia [Recovered/Resolved]
  - Constipation [Recovered/Resolved]
  - Abdominal pain [Recovering/Resolving]
  - Influenza [Recovered/Resolved]

NARRATIVE: CASE EVENT DATE: 20160329
